FAERS Safety Report 5710780-0 (Version None)
Quarter: 2008Q2

REPORT INFORMATION
  Report Type: 
  Country: None (occurrence: None)
  Receive Date: 20080415
  Receipt Date: 20080404
  Transmission Date: 20081010
  Serious: Yes (Other)
  Sender: FDA-Public Use
  Company Number: 2008SP006539

PATIENT
  Sex: Male

DRUGS (1)
  1. LORATADINE [Suspect]
     Indication: PREMEDICATION

REACTIONS (1)
  - VISUAL ACUITY REDUCED [None]
